FAERS Safety Report 18476687 (Version 2)
Quarter: 2020Q4

REPORT INFORMATION
  Report Type: Report from Study
  Country: US (occurrence: US)
  Receive Date: 20201107
  Receipt Date: 20201208
  Transmission Date: 20210114
  Serious: Yes (Other)
  Sender: FDA-Public Use
  Company Number: NVSC2020US292127

PATIENT
  Sex: Female

DRUGS (1)
  1. TABRECTA [Suspect]
     Active Substance: CAPMATINIB
     Indication: NON-SMALL CELL LUNG CANCER
     Dosage: UNK
     Route: 065

REACTIONS (11)
  - Metastases to spleen [Unknown]
  - Wrong technique in product usage process [Unknown]
  - Pain [Unknown]
  - Concomitant disease aggravated [Unknown]
  - Dysphagia [Unknown]
  - Weight decreased [Unknown]
  - Product size issue [Unknown]
  - Nausea [Unknown]
  - Gastrointestinal disorder [Unknown]
  - Metastases to peritoneum [Unknown]
  - Product use complaint [Unknown]
